FAERS Safety Report 19513502 (Version 1)
Quarter: 2021Q3

REPORT INFORMATION
  Report Type: Spontaneous
  Country: US (occurrence: US)
  Receive Date: 20210709
  Receipt Date: 20210709
  Transmission Date: 20211014
  Serious: Yes (Hospitalization, Other)
  Sender: FDA-Public Use
  Company Number: US-ACCORD-230867

PATIENT
  Age: 52 Year
  Sex: Female

DRUGS (1)
  1. PACLITAXEL/PACLITAXEL LIPOSOME [Suspect]
     Active Substance: PACLITAXEL
     Indication: BREAST CANCER STAGE III

REACTIONS (5)
  - Sepsis [Recovering/Resolving]
  - Hypersensitivity pneumonitis [Recovering/Resolving]
  - Tachycardia [Recovering/Resolving]
  - Type IV hypersensitivity reaction [Recovering/Resolving]
  - Hypotension [Recovering/Resolving]
